FAERS Safety Report 16555849 (Version 1)
Quarter: 2019Q3

REPORT INFORMATION
  Report Type: Spontaneous
  Country: DE (occurrence: DE)
  Receive Date: 20190710
  Receipt Date: 20190710
  Transmission Date: 20191004
  Serious: Yes (Other)
  Sender: FDA-Public Use
  Company Number: PHHY2019DE154146

PATIENT
  Age: 77 Year
  Sex: Male

DRUGS (5)
  1. PRAMIPEXOLE. [Suspect]
     Active Substance: PRAMIPEXOLE
     Indication: PARKINSON^S DISEASE
     Dosage: 3.15 MG, QD
     Route: 065
  2. PRAMIPEXOLE. [Suspect]
     Active Substance: PRAMIPEXOLE
     Dosage: 0.7 MG, Q8H
     Route: 065
  3. LEVODOPA [Suspect]
     Active Substance: LEVODOPA
     Indication: PARKINSON^S DISEASE
     Dosage: 450 MG, QD
     Route: 065
  4. LEVODOPA [Suspect]
     Active Substance: LEVODOPA
     Dosage: UNK (TRIAL INCREASE OF DOSAGE (L-DOPA TEST))
     Route: 065
  5. AMANTADINE HYDROCHLORIDE. [Suspect]
     Active Substance: AMANTADINE HYDROCHLORIDE
     Indication: PARKINSON^S DISEASE
     Dosage: 150 MG, Q12H
     Route: 065

REACTIONS (3)
  - Camptocormia [Recovering/Resolving]
  - Orthostatic intolerance [Unknown]
  - Pleurothotonus [Unknown]
